FAERS Safety Report 16175513 (Version 2)
Quarter: 2019Q3

REPORT INFORMATION
  Report Type: Spontaneous
  Country: US (occurrence: US)
  Receive Date: 20190409
  Receipt Date: 20190816
  Transmission Date: 20191004
  Serious: No
  Sender: FDA-Public Use
  Company Number: US-PFIZER INC-2019147718

PATIENT
  Age: 65 Year
  Sex: Female

DRUGS (2)
  1. CEFEPIME HCL [Suspect]
     Active Substance: CEFEPIME HYDROCHLORIDE
     Indication: NEUTROPENIA
  2. CEFEPIME HCL [Suspect]
     Active Substance: CEFEPIME HYDROCHLORIDE
     Indication: PYREXIA
     Dosage: UNK
     Dates: start: 20181211, end: 20181215

REACTIONS (4)
  - Drug eruption [Recovering/Resolving]
  - Drug hypersensitivity [Unknown]
  - Lip ulceration [Unknown]
  - Rash [Recovered/Resolved]
